FAERS Safety Report 5274733-1 (Version None)
Quarter: 2007Q1

REPORT INFORMATION
  Report Type: 
  Country: None (occurrence: None)
  Receive Date: 20070320
  Receipt Date: 20070308
  Transmission Date: 20070707
  Serious: Yes (Other)
  Sender: FDA-Public Use
  Company Number: 2007310856

PATIENT
  Age: 43 Year
  Sex: Female
  Weight: 90.7194 kg

DRUGS (1)
  1. SUDAFED PE SINUS AND ALLERGY (PHENYLEPHRINE HYDROCHLORIDE, CHLORPHENAM [Suspect]
     Indication: SINUS DISORDER
     Dosage: ONE TABLET ONCE, ORAL
     Route: 048
     Dates: start: 20070302, end: 20070302

REACTIONS (7)
  - BLOOD IRON DECREASED [None]
  - DIZZINESS [None]
  - FLUSHING [None]
  - HEART RATE INCREASED [None]
  - PRESYNCOPE [None]
  - SPEECH DISORDER [None]
  - VERTIGO [None]
